FAERS Safety Report 16318665 (Version 1)
Quarter: 2019Q2

REPORT INFORMATION
  Report Type: Spontaneous
  Country: US (occurrence: US)
  Receive Date: 20190516
  Receipt Date: 20190516
  Transmission Date: 20190711
  Serious: No
  Sender: FDA-Public Use
  Company Number: US-ASTRAZENECA-2019SE64551

PATIENT
  Sex: Male

DRUGS (1)
  1. IMFINZI [Suspect]
     Active Substance: DURVALUMAB
     Dosage: UNKNOWN DOSE, EVERY TWO WEEKS
     Route: 042
     Dates: start: 2019

REACTIONS (2)
  - Fatigue [Unknown]
  - Muscular weakness [Unknown]
